FAERS Safety Report 20499659 (Version 3)
Quarter: 2023Q1

REPORT INFORMATION
  Report Type: Spontaneous
  Country: US (occurrence: US)
  Receive Date: 20220222
  Receipt Date: 20230130
  Transmission Date: 20230418
  Serious: Yes (Other)
  Sender: FDA-Public Use
  Company Number: US-UCBSA-2021054889

PATIENT
  Sex: Male

DRUGS (20)
  1. KEPPRA [Suspect]
     Active Substance: LEVETIRACETAM
     Indication: Seizure
     Dosage: 500 MILLIGRAM, 2X/DAY (BID)
     Route: 048
  2. KEPPRA [Suspect]
     Active Substance: LEVETIRACETAM
     Dosage: 1000MG IN THE MORNING AND 500MG IN THE EVENING
     Route: 048
  3. KEPPRA [Suspect]
     Active Substance: LEVETIRACETAM
     Dosage: 700 MG IN THE MORNING, 1000 MG IN THE EVENING
     Route: 048
  4. KEPPRA [Suspect]
     Active Substance: LEVETIRACETAM
     Dosage: 100 MG IN MORNING AND 75 MG IN EVENING
     Route: 048
  5. KEPPRA [Suspect]
     Active Substance: LEVETIRACETAM
     Dosage: 2000 MILLIGRAM, ONCE DAILY (QD)
     Route: 048
  6. FYCOMPA [Suspect]
     Active Substance: PERAMPANEL
     Indication: Partial seizures
     Dosage: 2MG PER DAY
     Route: 048
     Dates: start: 20191122, end: 20191130
  7. FYCOMPA [Suspect]
     Active Substance: PERAMPANEL
     Dosage: 4MG PER DAY
     Route: 048
     Dates: start: 20191201, end: 20191206
  8. FYCOMPA [Suspect]
     Active Substance: PERAMPANEL
     Dosage: 6MG PER DAY
     Route: 048
     Dates: start: 20191207, end: 20200206
  9. FYCOMPA [Suspect]
     Active Substance: PERAMPANEL
     Dosage: 7MG PER DAY
     Route: 048
     Dates: start: 20200207, end: 20210220
  10. FYCOMPA [Suspect]
     Active Substance: PERAMPANEL
     Dosage: 8MG PER DAY
     Route: 048
     Dates: start: 20210221
  11. APTIOM [Suspect]
     Active Substance: ESLICARBAZEPINE ACETATE
     Indication: Product used for unknown indication
     Dosage: 50 MILLIGRAM, 2X/DAY (BID)
  12. APTIOM [Suspect]
     Active Substance: ESLICARBAZEPINE ACETATE
     Dosage: SLOW DOWN TITRATION
  13. APTIOM [Suspect]
     Active Substance: ESLICARBAZEPINE ACETATE
     Dosage: 700MG PER DAY
  14. APTIOM [Suspect]
     Active Substance: ESLICARBAZEPINE ACETATE
     Dosage: SLOW DOWN TITRATION
  15. APTIOM [Suspect]
     Active Substance: ESLICARBAZEPINE ACETATE
     Dosage: 200 MG PER DAY
  16. APTIOM [Suspect]
     Active Substance: ESLICARBAZEPINE ACETATE
     Dosage: 150MG PER DAY
  17. LENVIMA [Concomitant]
     Active Substance: LENVATINIB
     Indication: Product used for unknown indication
     Dosage: 8MG/DAY
  18. DILANTIN [Concomitant]
     Active Substance: PHENYTOIN
     Indication: Product used for unknown indication
     Dosage: 180MG PER DAY
     Route: 048
  19. DILANTIN [Concomitant]
     Active Substance: PHENYTOIN
     Dosage: 30 MILLIGRAM, 2X/DAY (BID)
     Route: 048
  20. DILANTIN [Concomitant]
     Active Substance: PHENYTOIN
     Dosage: 30MG PER DAY
     Route: 048

REACTIONS (11)
  - Seizure [Unknown]
  - Balance disorder [Not Recovered/Not Resolved]
  - Amnesia [Not Recovered/Not Resolved]
  - Epileptic aura [Unknown]
  - Insomnia [Unknown]
  - Slow speech [Not Recovered/Not Resolved]
  - Dysarthria [Not Recovered/Not Resolved]
  - Gait disturbance [Not Recovered/Not Resolved]
  - Gastrooesophageal reflux disease [Recovered/Resolved]
  - Fall [Recovered/Resolved]
  - Product use issue [Unknown]

NARRATIVE: CASE EVENT DATE: 20190101
